FAERS Safety Report 20862150 (Version 2)
Quarter: 2022Q2

REPORT INFORMATION
  Report Type: Spontaneous
  Country: DE (occurrence: DE)
  Receive Date: 20220523
  Receipt Date: 20220602
  Transmission Date: 20220721
  Serious: Yes (Other)
  Sender: FDA-Public Use
  Company Number: DE-AUROBINDO-AUR-APL-2022-014788

PATIENT
  Sex: Male

DRUGS (4)
  1. LEVOFLOXACIN [Suspect]
     Active Substance: LEVOFLOXACIN
     Indication: Prostatitis
     Dosage: 1 DOSAGE FORM, QD (1 DOSAGE FORM, DAILY)
     Route: 048
     Dates: start: 20220211
  2. LEVOFLOXACIN [Suspect]
     Active Substance: LEVOFLOXACIN
     Indication: Prostatitis
     Dosage: 1 DOSAGE FORM, QD (1 DOSAGE FORM, DAILY) (START DATE: 24-APR-2022)
     Route: 048
  3. ICHTHAMMOL [Concomitant]
     Active Substance: ICHTHAMMOL
     Indication: Prostatitis
     Dosage: UNK
     Route: 065
  4. TAMSULOSIN [Concomitant]
     Active Substance: TAMSULOSIN
     Indication: Prostatitis
     Dosage: 1 DOSAGE FORM, QD (1 DOSAGE FORM, ONCE A DAY)
     Route: 048

REACTIONS (5)
  - Paraesthesia [Recovering/Resolving]
  - Gastrointestinal disorder [Recovered/Resolved]
  - Restlessness [Recovered/Resolved]
  - Insomnia [Recovered/Resolved]
  - Off label use [Unknown]

NARRATIVE: CASE EVENT DATE: 20220201
